FAERS Safety Report 22232321 (Version 1)
Quarter: 2023Q2

REPORT INFORMATION
  Report Type: Spontaneous
  Country: US (occurrence: None)
  Receive Date: 20230420
  Receipt Date: 20230420
  Transmission Date: 20230722
  Serious: No
  Sender: FDA-Public Use
  Company Number: US-ROCHE-3064597

PATIENT
  Sex: Male

DRUGS (1)
  1. ESBRIET [Suspect]
     Active Substance: PIRFENIDONE
     Indication: Product used for unknown indication
     Dosage: TAKE 1 TABLET 3 TIMES DAILY FOR 1 WEEK , 2 TABLET 3 TIME DAILY, 3 TAB 3 TIMES DAILY
     Route: 048

REACTIONS (1)
  - Abdominal discomfort [Unknown]
